FAERS Safety Report 7820405-6 (Version None)
Quarter: 2011Q4

REPORT INFORMATION
  Report Type: 
  Country: None (occurrence: None)
  Receive Date: 20111018
  Receipt Date: 20111012
  Transmission Date: 20120403
  Serious: Yes (Hospitalization)
  Sender: FDA-Public Use
  Company Number: JP-ROCHE-802862

PATIENT
  Sex: Female
  Weight: 60 kg

DRUGS (8)
  1. TRACLEER [Concomitant]
     Indication: PROPHYLAXIS
     Route: 048
     Dates: start: 20110331
  2. ALENDRONATE SODIUM [Concomitant]
     Indication: OSTEOPOROSIS PROPHYLAXIS
     Route: 048
     Dates: start: 20110606
  3. ACTEMRA [Suspect]
     Indication: SCLERODERMA
     Route: 041
     Dates: start: 20110708, end: 20110902
  4. JUVELA N [Concomitant]
     Indication: SCLERODERMA
     Route: 048
     Dates: start: 20101118
  5. MEDROL [Concomitant]
     Indication: SCLERODERMA
     Route: 048
     Dates: start: 20110601
  6. ACTEMRA [Suspect]
     Route: 041
     Dates: start: 20110101, end: 20110901
  7. EPADEL [Concomitant]
     Indication: SCLERODERMA
     Route: 048
     Dates: start: 20101118
  8. RABEPRAZOLE SODIUM [Concomitant]
     Indication: PROPHYLAXIS
     Route: 048
     Dates: start: 20110531

REACTIONS (1)
  - MALAISE [None]
